FAERS Safety Report 13920959 (Version 3)
Quarter: 2017Q3

REPORT INFORMATION
  Report Type: Spontaneous
  Country: JP (occurrence: JP)
  Receive Date: 20170830
  Receipt Date: 20170919
  Transmission Date: 20171127
  Serious: Yes (Hospitalization)
  Sender: FDA-Public Use
  Company Number: JP-TEVA-2017-JP-002776J

PATIENT
  Age: 6 Year
  Sex: Male
  Weight: 18 kg

DRUGS (1)
  1. AZITHROMYCIN TABLET 250MG TEVA [Suspect]
     Active Substance: AZITHROMYCIN
     Indication: VIRAL UPPER RESPIRATORY TRACT INFECTION
     Dosage: 10 MG/KG DAILY;
     Route: 065

REACTIONS (1)
  - Agranulocytosis [Recovering/Resolving]
